FAERS Safety Report 25429795 (Version 1)
Quarter: 2025Q2

REPORT INFORMATION
  Report Type: Spontaneous
  Country: US (occurrence: US)
  Receive Date: 20250612
  Receipt Date: 20250612
  Transmission Date: 20250716
  Serious: Yes (Other)
  Sender: FRESENIUS KABI
  Company Number: US-FreseniusKabi-FK202507967

PATIENT
  Sex: Female

DRUGS (1)
  1. OXYTOCIN [Suspect]
     Active Substance: OXYTOCIN
     Indication: Labour induction

REACTIONS (4)
  - Wrong product administered [Unknown]
  - Premature labour [Unknown]
  - Uterine tachysystole [Unknown]
  - Maternal exposure during pregnancy [Unknown]
